FAERS Safety Report 8952704 (Version 2)
Quarter: 2013Q1

REPORT INFORMATION
  Report Type: Spontaneous
  Country: BE (occurrence: BE)
  Receive Date: 20121205
  Receipt Date: 20130122
  Transmission Date: 20140127
  Serious: Yes (Other)
  Sender: FDA-Public Use
  Company Number: BE-ASTRAZENECA-2012SE89914

PATIENT
  Age: 28117 Day
  Sex: Female
  Weight: 80 kg

DRUGS (5)
  1. BRILIQUE [Suspect]
     Route: 048
     Dates: start: 20121101, end: 20121107
  2. ASA [Concomitant]
     Indication: ACUTE CORONARY SYNDROME
     Route: 048
     Dates: start: 20121028
  3. LIPITOR [Concomitant]
  4. ALDACTONE [Concomitant]
  5. MOXON [Concomitant]

REACTIONS (3)
  - Sinus arrest [Recovered/Resolved]
  - Syncope [Recovered/Resolved]
  - Arrhythmia [Recovered/Resolved]
